FAERS Safety Report 6528239-X (Version None)
Quarter: 2010Q1

REPORT INFORMATION
  Report Type: 
  Country: None (occurrence: None)
  Receive Date: 20100105
  Receipt Date: 20100105
  Transmission Date: 20100710
  Serious: Yes (Other)
  Sender: FDA-Public Use
  Company Number: None

PATIENT
  Age: 2 Year
  Sex: Female
  Weight: 15.8759 kg

DRUGS (1)
  1. CEFPROZIL [Suspect]
     Indication: BACTERIAL INFECTION
     Dosage: 5ML TWICE DAILY PO
     Route: 048
     Dates: start: 20091227, end: 20091230

REACTIONS (9)
  - AGGRESSION [None]
  - CHROMATURIA [None]
  - CRYING [None]
  - IRRITABILITY [None]
  - MIDDLE INSOMNIA [None]
  - MOOD ALTERED [None]
  - RESTLESSNESS [None]
  - SCREAMING [None]
  - URINE OUTPUT INCREASED [None]
